FAERS Safety Report 8087346-3 (Version None)
Quarter: 2012Q1

REPORT INFORMATION
  Report Type: 
  Country: None (occurrence: None)
  Receive Date: 20120128
  Receipt Date: 20110428
  Transmission Date: 20120608
  Serious: No
  Sender: FDA-Public Use
  Company Number: US-ABBOTT-11P-163-0722243-00

PATIENT
  Age: 44 Year
  Sex: Male

DRUGS (3)
  1. HYDROCHLOROTHIAZIDE [Concomitant]
     Indication: HYPERTENSION
     Dosage: 100/25 DAILY
     Dates: start: 20090201
  2. KLONOPIN [Concomitant]
     Indication: ANXIETY
     Dates: start: 20090201
  3. HUMIRA [Suspect]
     Indication: PSORIASIS
     Dates: start: 20090201

REACTIONS (4)
  - PRURITUS [None]
  - LUPUS-LIKE SYNDROME [None]
  - ERYTHEMA [None]
  - ARTHRALGIA [None]
